FAERS Safety Report 4891803-8 (Version None)
Quarter: 2006Q1

REPORT INFORMATION
  Report Type: 
  Country: None (occurrence: None)
  Receive Date: 20060123
  Receipt Date: 20060110
  Transmission Date: 20060701
  Serious: Yes (Other)
  Sender: FDA-Public Use
  Company Number: CA_050908663

PATIENT
  Age: 77 Year
  Sex: Female

DRUGS (9)
  1. FORTEO [Suspect]
     Indication: OSTEOPOROSIS
     Dosage: 20 UG, DAILY (1/D),
     Dates: start: 20050604
  2. SULCRATE (SUCRALFATE) [Concomitant]
  3. QUININE SULPHATE (QUININE SULPHATE) [Concomitant]
  4. VITAMIN D [Concomitant]
  5. GLUCOSAMINE (GLUCOSAMINE) [Concomitant]
  6. CALCIUM (CALCIUM) [Concomitant]
  7. LOSEC (OMEPRAZOLE SODIUM) [Concomitant]
  8. ASPIRIN [Concomitant]
  9. FORTEO PEN, 250MCG/ML (3ML) (FORTEO PEN 250MCG/ML (3ML)) PEN, DISPOSAB [Concomitant]

REACTIONS (3)
  - BRAIN CANCER METASTATIC [None]
  - CARCINOEMBRYONIC ANTIGEN INCREASED [None]
  - LUNG NEOPLASM MALIGNANT [None]
